FAERS Safety Report 15151737 (Version 1)
Quarter: 2018Q3

REPORT INFORMATION
  Report Type: Spontaneous
  Country: FR (occurrence: FR)
  Receive Date: 20180716
  Receipt Date: 20180716
  Transmission Date: 20181010
  Serious: Yes (Death, Hospitalization)
  Sender: FDA-Public Use
  Company Number: FR-TEVA-2018-FR-925819

PATIENT
  Age: 58 Year
  Sex: Male
  Weight: 106 kg

DRUGS (2)
  1. BROMAZEPAM [Suspect]
     Active Substance: BROMAZEPAM
     Indication: POISONING DELIBERATE
     Route: 048
     Dates: start: 201805, end: 201805
  2. BISOPROLOL (HEMIFUMARATE DE) [Suspect]
     Active Substance: BISOPROLOL FUMARATE
     Indication: POISONING DELIBERATE
     Route: 048
     Dates: start: 201805, end: 201805

REACTIONS (4)
  - Coma [Fatal]
  - Cardiogenic shock [Fatal]
  - Bradycardia [Fatal]
  - Hypotension [Fatal]

NARRATIVE: CASE EVENT DATE: 20180522
